FAERS Safety Report 4739303-X (Version None)
Quarter: 2005Q3

REPORT INFORMATION
  Report Type: 
  Country: None (occurrence: None)
  Receive Date: 20050810
  Receipt Date: 20050114
  Transmission Date: 20060218
  Serious: No
  Sender: FDA-Public Use
  Company Number: US-GLAXOSMITHKLINE-A0540766A

PATIENT
  Age: 34 Year
  Sex: Male

DRUGS (3)
  1. PAXIL [Suspect]
     Dosage: 20MG PER DAY
     Route: 048
     Dates: end: 20050102
  2. MONOPRIL [Concomitant]
  3. HYDROCHLOROTHIAZIDE [Concomitant]
     Route: 065

REACTIONS (16)
  - ANXIETY [None]
  - DEPRESSION [None]
  - DISTURBANCE IN ATTENTION [None]
  - DYSPEPSIA [None]
  - EMOTIONAL DISORDER [None]
  - FATIGUE [None]
  - FEELING ABNORMAL [None]
  - HEADACHE [None]
  - HYPOAESTHESIA [None]
  - IMPULSIVE BEHAVIOUR [None]
  - MENTAL DISORDER [None]
  - MUSCLE SPASMS [None]
  - NIGHTMARE [None]
  - PARAESTHESIA [None]
  - SEXUAL DYSFUNCTION [None]
  - VERTIGO [None]
